FAERS Safety Report 19242784 (Version 5)
Quarter: 2021Q4

REPORT INFORMATION
  Report Type: Report from Study
  Country: US (occurrence: US)
  Receive Date: 20210511
  Receipt Date: 20211028
  Transmission Date: 20220303
  Serious: No
  Sender: FDA-Public Use
  Company Number: NVSC2021US098125

PATIENT
  Age: 55 Year
  Sex: Female

DRUGS (2)
  1. ENTRESTO [Suspect]
     Active Substance: SACUBITRIL\VALSARTAN
     Indication: Cardiac failure chronic
     Dosage: 50 MG,(24/26 MG)
     Route: 048
     Dates: start: 20210412
  2. ENTRESTO [Suspect]
     Active Substance: SACUBITRIL\VALSARTAN
     Dosage: UNK
     Route: 065

REACTIONS (14)
  - Aphasia [Unknown]
  - Throat clearing [Unknown]
  - Palpitations [Unknown]
  - Nervousness [Unknown]
  - Dyspnoea [Unknown]
  - Chest pain [Not Recovered/Not Resolved]
  - Arthralgia [Unknown]
  - Myalgia [Unknown]
  - Eye pruritus [Not Recovered/Not Resolved]
  - Rhinorrhoea [Unknown]
  - Dizziness postural [Recovering/Resolving]
  - Cough [Not Recovered/Not Resolved]
  - Hypotension [Recovering/Resolving]
  - Hypersensitivity [Unknown]

NARRATIVE: CASE EVENT DATE: 20210301
